FAERS Safety Report 8249835-8 (Version None)
Quarter: 2012Q1

REPORT INFORMATION
  Report Type: 
  Country: None (occurrence: None)
  Receive Date: 20120316
  Receipt Date: 20090223
  Transmission Date: 20120608
  Serious: Yes (Other)
  Sender: FDA-Public Use
  Company Number: PHEH2009US01902

PATIENT
  Sex: Female

DRUGS (2)
  1. TEKTURNA [Suspect]
     Indication: HYPERTENSION
     Dosage: 150MG 150MG AND 1/2 150MG TABLETS
     Dates: start: 20090202
  2. TEKTURNA [Suspect]
     Indication: HYPERTENSION
     Dosage: 150MG 150MG AND 1/2 150MG TABLETS
     Dates: start: 20080601, end: 20090201

REACTIONS (4)
  - HYPERTENSION [None]
  - ALOPECIA [None]
  - THERAPEUTIC RESPONSE DECREASED [None]
  - FEELING ABNORMAL [None]
